FAERS Safety Report 9201633 (Version 3)
Quarter: 2013Q3

REPORT INFORMATION
  Report Type: Spontaneous
  Country: US (occurrence: US)
  Receive Date: 20130401
  Receipt Date: 20130716
  Transmission Date: 20140515
  Serious: Yes (Hospitalization, Other)
  Sender: FDA-Public Use
  Company Number: PHEH2013US007274

PATIENT
  Sex: Female

DRUGS (2)
  1. GILENYA [Suspect]
     Dosage: 0.5 MG, UNK
     Route: 048
  2. LEXAPRO [Concomitant]
     Indication: DEPRESSION

REACTIONS (2)
  - Suicide attempt [Recovering/Resolving]
  - Depression [Recovering/Resolving]
